FAERS Safety Report 13152441 (Version 1)
Quarter: 2017Q1

REPORT INFORMATION
  Report Type: Not Available
  Country: US (occurrence: US)
  Receive Date: 20170125
  Receipt Date: 20170125
  Transmission Date: 20170428
  Serious: Yes (Other)
  Sender: FDA-Public Use
  Company Number: US-ANIPHARMA-2017-US-000694

PATIENT
  Age: 51 Year
  Sex: Female

DRUGS (3)
  1. DESIPRAMINE HYDROCHLORIDE TABLETS (NON-SPECIFIC) [Suspect]
     Active Substance: DESIPRAMINE HYDROCHLORIDE
     Route: 065
  2. HYDROXYZINE [Concomitant]
     Active Substance: HYDROXYZINE HYDROCHLORIDE
     Route: 065
  3. QUETIAPINE. [Concomitant]
     Active Substance: QUETIAPINE
     Route: 065

REACTIONS (3)
  - Overdose [Unknown]
  - Tardive dyskinesia [Unknown]
  - Tachypnoea [Unknown]
